FAERS Safety Report 18960522 (Version 1)
Quarter: 2021Q1

REPORT INFORMATION
  Report Type: Spontaneous
  Country: RO (occurrence: RO)
  Receive Date: 20210302
  Receipt Date: 20210302
  Transmission Date: 20210420
  Serious: Yes (Other)
  Sender: FDA-Public Use
  Company Number: NVSC2021RO040618

PATIENT
  Age: 35 Year
  Sex: Male
  Weight: 117 kg

DRUGS (7)
  1. NITROMINT [Concomitant]
     Active Substance: NITROGLYCERIN
     Indication: BLOOD PRESSURE INCREASED
  2. NITROMINT [Concomitant]
     Active Substance: NITROGLYCERIN
     Indication: RESPIRATORY RATE INCREASED
  3. ENTRESTO [Suspect]
     Active Substance: SACUBITRIL\VALSARTAN
     Indication: CARDIAC FAILURE
     Dosage: (49MG/51MG) BID
     Route: 048
     Dates: start: 20200921, end: 20201130
  4. ENTRESTO [Suspect]
     Active Substance: SACUBITRIL\VALSARTAN
     Indication: CARDIAC FAILURE CONGESTIVE
     Dosage: UNK UNK, BID
     Route: 048
     Dates: start: 202101, end: 202101
  5. FORXIGA [Suspect]
     Active Substance: DAPAGLIFLOZIN
     Indication: PRODUCT USED FOR UNKNOWN INDICATION
     Route: 065
  6. NITROMINT [Concomitant]
     Active Substance: NITROGLYCERIN
     Indication: CHEST PAIN
     Route: 060
  7. CRESTOR [Concomitant]
     Active Substance: ROSUVASTATIN CALCIUM
     Indication: DYSLIPIDAEMIA
     Dosage: 10 MG, QD (ONE IN THE EVENING)
     Route: 048
     Dates: start: 2017

REACTIONS (6)
  - Chills [Recovered/Resolved]
  - Rash [Recovered/Resolved]
  - Chills [Unknown]
  - Rash [Recovered/Resolved]
  - Drug intolerance [Unknown]
  - Coronary artery disease [Unknown]

NARRATIVE: CASE EVENT DATE: 20200921
